FAERS Safety Report 10621834 (Version 4)
Quarter: 2015Q2

REPORT INFORMATION
  Report Type: Spontaneous
  Country: JP (occurrence: JP)
  Receive Date: 20141203
  Receipt Date: 20150626
  Transmission Date: 20150821
  Serious: Yes (Hospitalization)
  Sender: FDA-Public Use
  Company Number: JP-MERCK-1412JPN001331

PATIENT
  Age: 55 Year
  Sex: Female

DRUGS (7)
  1. LORAZEPAM. [Concomitant]
     Active Substance: LORAZEPAM
     Dosage: DAILY DOSAGE UNKNOWN
  2. ETIZOLAM [Concomitant]
     Active Substance: ETIZOLAM
     Dosage: 1 MG, QD
     Dates: start: 20140314
  3. ZYPREXA [Concomitant]
     Active Substance: OLANZAPINE
     Dosage: 2.5 MG, QD
     Dates: start: 20131216
  4. TETRAMIDE TABLETS 10MG [Suspect]
     Active Substance: MIANSERIN
     Dosage: DAILY DOSAGE UNKNOWN
     Route: 048
     Dates: start: 20141008, end: 20141126
  5. ZOLPIDEM TARTRATE. [Concomitant]
     Active Substance: ZOLPIDEM TARTRATE
     Dosage: 10 MG, QD
     Dates: start: 20131122
  6. BROTIZOLAM [Concomitant]
     Active Substance: BROTIZOLAM
     Dosage: 0.25MG, QD
     Route: 048
     Dates: start: 20131122
  7. BELSOMRA [Suspect]
     Active Substance: SUVOREXANT
     Indication: INSOMNIA
     Dosage: DAILY DOSAGE UNKNOWN
     Route: 048
     Dates: start: 20141126, end: 20141127

REACTIONS (2)
  - Adverse event [Unknown]
  - Nausea [Recovered/Resolved]

NARRATIVE: CASE EVENT DATE: 20141127
